FAERS Safety Report 5868872-1 (Version None)
Quarter: 2008Q3

REPORT INFORMATION
  Report Type: 
  Country: None (occurrence: None)
  Receive Date: 20080902
  Receipt Date: 20080902
  Transmission Date: 20090109
  Serious: No
  Sender: FDA-Public Use
  Company Number: None

PATIENT
  Age: 69 Year
  Sex: Female
  Weight: 70.3075 kg

DRUGS (2)
  1. NEXIUM [Suspect]
     Indication: COUGH
     Dosage: TAKE TWO CAPSULES FOR 2 WEEKS PO, TAKE 1 CAPSULE DAILY FOR 4 WEEKS PO
     Route: 048
     Dates: start: 20080701, end: 20080731
  2. NEXIUM [Suspect]
     Indication: EAR DISCOMFORT
     Dosage: TAKE TWO CAPSULES FOR 2 WEEKS PO, TAKE 1 CAPSULE DAILY FOR 4 WEEKS PO
     Route: 048
     Dates: start: 20080701, end: 20080731

REACTIONS (3)
  - DIZZINESS [None]
  - RASH ERYTHEMATOUS [None]
  - RASH PRURITIC [None]
